FAERS Safety Report 7199714-2 (Version None)
Quarter: 2010Q4

REPORT INFORMATION
  Report Type: 
  Country: None (occurrence: None)
  Receive Date: 20101228
  Receipt Date: 20101220
  Transmission Date: 20110411
  Serious: Yes (Other)
  Sender: FDA-Public Use
  Company Number: US-JNJFOC-20101207363

PATIENT

DRUGS (3)
  1. RISPERIDONE [Suspect]
     Indication: MANIA
     Dosage: 2 MG ON DAY 1, 3 MG ON DAY 2 AND FLEXIBLE DOSING UPTO 6 MG.
     Route: 065
  2. RISPERIDONE [Suspect]
     Indication: BIPOLAR DISORDER
     Dosage: 2 MG ON DAY 1, 3 MG ON DAY 2 AND FLEXIBLE DOSING UPTO 6 MG.
     Route: 065
  3. ALCOHOL [Suspect]
     Indication: ILL-DEFINED DISORDER
     Route: 065

REACTIONS (1)
  - ALCOHOL POISONING [None]
